FAERS Safety Report 6520530-6 (Version None)
Quarter: 2009Q4

REPORT INFORMATION
  Report Type: 
  Country: None (occurrence: None)
  Receive Date: 20091229
  Receipt Date: 20091224
  Transmission Date: 20100525
  Serious: Yes (Hospitalization)
  Sender: FDA-Public Use
  Company Number: B0620207A

PATIENT
  Sex: Female

DRUGS (6)
  1. AUGMENTIN '125' [Suspect]
     Indication: DRUG USE FOR UNKNOWN INDICATION
     Dosage: 1G THREE TIMES PER DAY
     Route: 048
     Dates: start: 20091101, end: 20091106
  2. VANCOMYCIN [Concomitant]
     Dosage: 1G TWICE PER DAY
     Route: 042
     Dates: start: 20091105
  3. LOVENOX [Concomitant]
     Route: 065
     Dates: start: 20091105
  4. DEPAKENE [Concomitant]
     Route: 065
  5. KEPPRA [Concomitant]
     Route: 065
  6. TEGRETOL [Concomitant]
     Route: 065

REACTIONS (8)
  - ACUTE GENERALISED EXANTHEMATOUS PUSTULOSIS [None]
  - ERYTHEMA [None]
  - HYPOALBUMINAEMIA [None]
  - NEUTROPHIL COUNT INCREASED [None]
  - PYREXIA [None]
  - RASH PUSTULAR [None]
  - SKIN BURNING SENSATION [None]
  - WHITE BLOOD CELL COUNT INCREASED [None]
